FAERS Safety Report 18867016 (Version 1)
Quarter: 2021Q1

REPORT INFORMATION
  Report Type: Spontaneous
  Country: US (occurrence: US)
  Receive Date: 20210208
  Receipt Date: 20210208
  Transmission Date: 20210420
  Serious: No
  Sender: FDA-Public Use
  Company Number: US-SA-2021SA038392

PATIENT
  Sex: Female

DRUGS (3)
  1. DUPIXENT [Suspect]
     Active Substance: DUPILUMAB
     Indication: DERMATITIS ATOPIC
     Dosage: 300 MG, QOW
     Dates: start: 201803, end: 202012
  2. ADVIL [Concomitant]
     Active Substance: IBUPROFEN
  3. DAILY VITE [ASCORBIC ACID;COLECALCIFEROL;CYANOCOBALAMIN;FOLIC ACID;NIC [Concomitant]

REACTIONS (1)
  - Dermatitis atopic [Unknown]
